FAERS Safety Report 7588325-2 (Version None)
Quarter: 2011Q3

REPORT INFORMATION
  Report Type: 
  Country: None (occurrence: None)
  Receive Date: 20110705
  Receipt Date: 20100515
  Transmission Date: 20111222
  Serious: Yes (Other)
  Sender: FDA-Public Use
  Company Number: US-BAYER-201021980NA

PATIENT
  Age: 23 Year
  Sex: Female
  Weight: 63.492 kg

DRUGS (36)
  1. TRASYLOL [Suspect]
     Dosage: 1 ML, ONCE
     Route: 042
     Dates: start: 20070919, end: 20070919
  2. TRASYLOL [Suspect]
     Dosage: 50ML/HR INFUSION
     Route: 042
     Dates: start: 20070919, end: 20070919
  3. VICODIN ES [Concomitant]
     Dosage: UNK
     Route: 048
     Dates: start: 20030101, end: 20100101
  4. ORAMORPH SR [Concomitant]
     Dosage: UNK
     Route: 048
     Dates: start: 20070905
  5. PROPOFOL [Concomitant]
     Dosage: UNK IV INFUSION
     Route: 042
     Dates: start: 20070919
  6. LEVOPHED [Concomitant]
     Dosage: 8MG/250ML IV INFUSION
     Route: 042
     Dates: start: 20070917
  7. LEVOPHED [Concomitant]
     Dosage: IV INFUSION
     Route: 042
     Dates: start: 20070919, end: 20070926
  8. FRESH FROZEN PLASMA [Concomitant]
     Dosage: 4 U, ONCE
     Route: 042
     Dates: start: 20070919
  9. RED BLOOD CELLS [Concomitant]
     Dosage: 9 U, ONCE
     Route: 042
     Dates: start: 20070919
  10. TRASYLOL [Suspect]
     Dosage: 200ML LOADING DOSE
     Route: 042
     Dates: start: 20070919, end: 20070919
  11. TRASYLOL [Suspect]
     Dosage: 200 ML CARDIOPULMONARY BYPASS PRIME
     Dates: start: 20070919, end: 20070919
  12. MORPHINE SULFATE [Concomitant]
     Dosage: 4 MG, UNK
     Route: 042
     Dates: start: 20070915
  13. VICODIN [Concomitant]
     Dosage: 500/5, 1 OR 2 EVERY 4-5 HOURS
     Route: 048
     Dates: start: 20070905, end: 20070906
  14. NORCO [Concomitant]
     Dosage: 7.5/325MG, 1 OR 2 EVERY 4 HOURS AS NEEDED
  15. HEPARIN [Concomitant]
     Dosage: IV INFUSION
     Route: 042
     Dates: start: 20070912
  16. TRASYLOL [Suspect]
     Indication: MITRAL VALVE REPLACEMENT
     Dates: start: 20070918
  17. NAPROXEN SODIUM [Concomitant]
     Route: 048
  18. FRAGMIN [Concomitant]
     Dosage: 5000 U, QD
     Route: 058
     Dates: start: 20070903
  19. FENTANYL [Concomitant]
     Dosage: IV INFUSION
     Route: 042
     Dates: start: 20070912
  20. GENTAMYCIN SULFATE [Concomitant]
     Dosage: 80 MG, UNK
     Route: 042
     Dates: start: 20070919
  21. LASIX [Concomitant]
     Dosage: 100 MG, UNK
     Route: 042
     Dates: start: 20070919
  22. CRYOPRECIPITATES [Concomitant]
     Dosage: 10 U, ONCE
     Route: 042
     Dates: start: 20070919
  23. ATIVAN [Concomitant]
     Dosage: 1 MG, UNK, IV PUSH
     Route: 042
     Dates: start: 20070918
  24. DILAUDID [Concomitant]
     Dosage: IV INFUSION
     Route: 042
     Dates: start: 20070831, end: 20070905
  25. VANCOMYCIN [Concomitant]
     Dosage: 1 G, EVERY 12 HOURS
     Route: 042
     Dates: start: 20070912, end: 20070927
  26. VANCOMYCIN [Concomitant]
     Dosage: 1G
     Route: 042
     Dates: start: 20070927
  27. HEPARIN [Concomitant]
     Dosage: 24000 U, UNK
  28. SODIUM NITROPRUSSIDE [Concomitant]
     Dosage: 50MG/250ML IV INFUSION
     Route: 042
  29. MORPHINE SULFATE [Concomitant]
     Dosage: 2 MG, EVERY 6 HOURS AS NEEDED
     Route: 042
     Dates: start: 20070905
  30. FRAGMIN [Concomitant]
     Dosage: 5000 U DAILY
     Route: 058
     Dates: start: 20070915, end: 20070928
  31. FENTANYL [Concomitant]
     Dosage: 300MCG
     Route: 042
     Dates: start: 20070919, end: 20070926
  32. ULTRAVIST 370 [Concomitant]
     Indication: CATHETERISATION CARDIAC
     Dosage: 75 ML, UNK
     Dates: start: 20070918
  33. LOPRESSOR [Concomitant]
     Dosage: 25 MG, QD
     Route: 048
     Dates: start: 20070201
  34. VALIUM [Concomitant]
     Dosage: UNK
     Route: 048
     Dates: start: 20070907
  35. VERSED [Concomitant]
     Dosage: IV INFUSION
     Route: 042
  36. PROPOFOL [Concomitant]
     Dosage: IV INFUSION
     Route: 042
     Dates: start: 20070912, end: 20070926

REACTIONS (12)
  - RENAL FAILURE [None]
  - RENAL IMPAIRMENT [None]
  - DEPRESSION [None]
  - RENAL INJURY [None]
  - ANXIETY [None]
  - UNEVALUABLE EVENT [None]
  - ANHEDONIA [None]
  - FEAR [None]
  - STRESS [None]
  - PAIN [None]
  - INJURY [None]
  - AMNESIA [None]
